FAERS Safety Report 12993954 (Version 1)
Quarter: 2016Q4

REPORT INFORMATION
  Report Type: Report from Study
  Country: US (occurrence: None)
  Receive Date: 20161129
  Receipt Date: 20161129
  Transmission Date: 20170207
  Serious: Yes (Hospitalization)
  Sender: FDA-Public Use
  Company Number: A201606999

PATIENT
  Age: 59 Year
  Sex: Female

DRUGS (1)
  1. STRENSIQ [Suspect]
     Active Substance: ASFOTASE ALFA
     Indication: HYPOPHOSPHATASIA
     Route: 058
     Dates: end: 20160915

REACTIONS (4)
  - Hepatic lesion [None]
  - Herpes zoster [None]
  - Hepatic enzyme increased [None]
  - Neuralgia [None]

NARRATIVE: CASE EVENT DATE: 20160912
